FAERS Safety Report 11709242 (Version 1)
Quarter: 2015Q4

REPORT INFORMATION
  Report Type: Spontaneous
  Country: US (occurrence: US)
  Receive Date: 20151104
  Receipt Date: 20151104
  Transmission Date: 20160304
  Serious: No
  Sender: FDA-Public Use
  Company Number: US-ELI_LILLY_AND_COMPANY-US201101003078

PATIENT
  Sex: Female

DRUGS (6)
  1. FORTEO [Suspect]
     Active Substance: TERIPARATIDE
     Dosage: 20 UG, QD
     Dates: end: 201108
  2. AVONEX [Concomitant]
     Active Substance: INTERFERON BETA-1A
     Indication: MULTIPLE SCLEROSIS
     Dosage: UNK, WEEKLY (1/W)
     Dates: end: 201101
  3. FORTEO [Suspect]
     Active Substance: TERIPARATIDE
     Indication: OSTEOPOROSIS
     Dosage: 20 UG, QD
     Route: 065
     Dates: start: 2010
  4. BACLOFEN. [Concomitant]
     Active Substance: BACLOFEN
  5. ADVIL [Concomitant]
     Active Substance: IBUPROFEN
  6. TRAMADOL. [Concomitant]
     Active Substance: TRAMADOL

REACTIONS (9)
  - Arthralgia [Recovering/Resolving]
  - Pain in jaw [Recovered/Resolved]
  - Neck pain [Recovered/Resolved]
  - Myalgia [Recovering/Resolving]
  - Intentional product misuse [Unknown]
  - Intentional product misuse [Recovered/Resolved]
  - Abdominal discomfort [Unknown]
  - Headache [Recovering/Resolving]
  - Insomnia [Recovering/Resolving]
